FAERS Safety Report 12239082 (Version 1)
Quarter: 2016Q2

REPORT INFORMATION
  Report Type: Spontaneous
  Country: CH (occurrence: CH)
  Receive Date: 20160405
  Receipt Date: 20160405
  Transmission Date: 20160815
  Serious: Yes (Other)
  Sender: FDA-Public Use
  Company Number: CH-B.I. PHARMACEUTICALS,INC./RIDGEFIELD-2016-BI-19884SI

PATIENT
  Age: 32 Year
  Sex: Female

DRUGS (4)
  1. VIREAD [Suspect]
     Active Substance: TENOFOVIR DISOPROXIL FUMARATE
     Indication: HIV INFECTION
     Dosage: 245 MG
     Route: 064
     Dates: start: 20140918
  2. VIRAMUNE [Suspect]
     Active Substance: NEVIRAPINE
     Indication: HIV INFECTION
     Dosage: 400 MG
     Route: 064
     Dates: start: 20140918
  3. MIRTAZAPINE. [Suspect]
     Active Substance: MIRTAZAPINE
     Indication: ANXIETY DISORDER
     Dosage: 30 MG
     Route: 062
  4. EMTRIVA [Suspect]
     Active Substance: EMTRICITABINE
     Indication: HIV INFECTION
     Dosage: 200 MG
     Route: 064
     Dates: start: 20140818

REACTIONS (2)
  - Exposure during pregnancy [Unknown]
  - Abortion spontaneous [Recovered/Resolved]

NARRATIVE: CASE EVENT DATE: 20150311
